FAERS Safety Report 23579116 (Version 1)
Quarter: 2024Q1

REPORT INFORMATION
  Report Type: Spontaneous
  Country: US (occurrence: US)
  Receive Date: 20240229
  Receipt Date: 20240229
  Transmission Date: 20240409
  Serious: Yes (Other)
  Sender: FDA-Public Use
  Company Number: US-BRISTOL-MYERS SQUIBB COMPANY-2024-032473

PATIENT
  Age: 66 Year
  Sex: Female

DRUGS (2)
  1. OPDIVO [Suspect]
     Active Substance: NIVOLUMAB
     Indication: Ovarian cancer
     Route: 042
     Dates: start: 20221021, end: 202308
  2. YERVOY [Suspect]
     Active Substance: IPILIMUMAB
     Indication: Ovarian cancer
     Route: 042
     Dates: start: 20221021, end: 202308

REACTIONS (2)
  - Colitis [Unknown]
  - Off label use [Unknown]
